FAERS Safety Report 11428804 (Version 1)
Quarter: 2015Q3

REPORT INFORMATION
  Report Type: Spontaneous
  Country: US (occurrence: US)
  Receive Date: 20150828
  Receipt Date: 20150828
  Transmission Date: 20151125
  Serious: No
  Sender: FDA-Public Use
  Company Number: US-ROCHE-1150370

PATIENT
  Age: 60 Year
  Sex: Female

DRUGS (5)
  1. PEGASYS [Suspect]
     Active Substance: PEGINTERFERON ALFA-2A
     Indication: HEPATITIS C
     Route: 058
     Dates: start: 20120904, end: 20130212
  2. COPEGUS [Suspect]
     Active Substance: RIBAVIRIN
     Indication: HEPATITIS C
     Dosage: DIVIDED DOSE 400/400 MG
     Route: 048
     Dates: start: 20120904, end: 20130219
  3. PAXIL [Concomitant]
     Active Substance: PAROXETINE HYDROCHLORIDE
  4. TUMS [Concomitant]
     Active Substance: CALCIUM CARBONATE
  5. PREVACID [Concomitant]
     Active Substance: LANSOPRAZOLE

REACTIONS (21)
  - Abdominal distension [Not Recovered/Not Resolved]
  - Dyspepsia [Unknown]
  - Candida infection [Not Recovered/Not Resolved]
  - Memory impairment [Unknown]
  - Stomatitis [Unknown]
  - Lacrimation increased [Unknown]
  - Elevated mood [Unknown]
  - Asthenia [Unknown]
  - Depression [Unknown]
  - Anaemia [Unknown]
  - Skin mass [Unknown]
  - Immunodeficiency [Unknown]
  - Red blood cell count decreased [Unknown]
  - Solar lentigo [Not Recovered/Not Resolved]
  - Haemoglobin abnormal [Not Recovered/Not Resolved]
  - Fatigue [Unknown]
  - Platelet count decreased [Unknown]
  - Feeling abnormal [Unknown]
  - Depressed mood [Unknown]
  - White blood cell count decreased [Not Recovered/Not Resolved]
  - Alopecia [Unknown]

NARRATIVE: CASE EVENT DATE: 20130221
